FAERS Safety Report 5354314-1 (Version None)
Quarter: 2007Q2

REPORT INFORMATION
  Report Type: 
  Country: None (occurrence: None)
  Receive Date: 20070521
  Receipt Date: 20070210
  Transmission Date: 20071010
  Serious: No
  Sender: FDA-Public Use
  Company Number: WAES 0702USA01410

PATIENT
  Age: 80 Year
  Sex: Male

DRUGS (3)
  1. JANUVIA [Suspect]
     Dosage: 100 MG, DAILY, PO
     Route: 048
     Dates: start: 20070208
  2. ACTOS [Concomitant]
  3. METFORMIN HCL [Concomitant]

REACTIONS (4)
  - BLOOD GLUCOSE INCREASED [None]
  - CONFUSIONAL STATE [None]
  - DIZZINESS [None]
  - DRUG INEFFECTIVE [None]
